FAERS Safety Report 4635215-0 (Version None)
Quarter: 2005Q2

REPORT INFORMATION
  Report Type: 
  Country: None (occurrence: None)
  Receive Date: 20050411
  Receipt Date: 20050330
  Transmission Date: 20051028
  Serious: Yes (Hospitalization, Other)
  Sender: FDA-Public Use
  Company Number: 2005051733

PATIENT
  Age: 33 Year
  Sex: Female
  Weight: 89.8122 kg

DRUGS (1)
  1. DEPO-PROVERA [Suspect]
     Indication: CONTRACEPTION
     Dosage: INTERVAL: EVERY 3 MONTHS, INTRAMUSCULAR
     Route: 030
     Dates: start: 20040101

REACTIONS (9)
  - CAESAREAN SECTION [None]
  - INFERTILITY [None]
  - MENOPAUSE [None]
  - MENORRHAGIA [None]
  - METRORRHAGIA [None]
  - MIGRAINE [None]
  - OVARIAN CYST [None]
  - OVARIAN FAILURE [None]
  - UTERINE SPASM [None]
